FAERS Safety Report 9772349 (Version 1)
Quarter: 2013Q4

REPORT INFORMATION
  Report Type: Spontaneous
  Country: US (occurrence: None)
  Receive Date: 20131218
  Receipt Date: 20131218
  Transmission Date: 20140711
  Serious: Yes (Other)
  Sender: FDA-Public Use
  Company Number: None

PATIENT
  Age: 18 Year
  Sex: 0

DRUGS (1)
  1. 0.9% SODIUM CHLORIDE [Suspect]

REACTIONS (2)
  - Product container issue [None]
  - Medical device complication [None]
